FAERS Safety Report 9801902 (Version 1)
Quarter: 2014Q1

REPORT INFORMATION
  Report Type: Spontaneous
  Country: US (occurrence: US)
  Receive Date: 20140107
  Receipt Date: 20140107
  Transmission Date: 20141002
  Serious: No
  Sender: FDA-Public Use
  Company Number: US-ALLERGAN-1309821US

PATIENT
  Sex: Female

DRUGS (2)
  1. ACZONE [Suspect]
     Indication: ACNE
     Dosage: UNK, QOD
     Route: 061
     Dates: start: 201306
  2. RETIN A [Concomitant]
     Indication: ACNE

REACTIONS (5)
  - Inappropriate schedule of drug administration [Unknown]
  - Rash erythematous [Unknown]
  - Rash erythematous [Unknown]
  - Rash erythematous [Unknown]
  - Urticaria [Unknown]
